FAERS Safety Report 6270497-3 (Version None)
Quarter: 2009Q3

REPORT INFORMATION
  Report Type: 
  Country: None (occurrence: None)
  Receive Date: 20090716
  Receipt Date: 20090709
  Transmission Date: 20100115
  Serious: Yes (Hospitalization)
  Sender: FDA-Public Use
  Company Number: US-AVENTIS-200916036US

PATIENT
  Age: 46 Year
  Sex: Male

DRUGS (1)
  1. LANTUS [Suspect]
     Route: 058

REACTIONS (3)
  - FLUID RETENTION [None]
  - LOSS OF CONSCIOUSNESS [None]
  - RENAL FAILURE [None]
